FAERS Safety Report 8492850-X (Version None)
Quarter: 2012Q3

REPORT INFORMATION
  Report Type: 
  Country: None (occurrence: None)
  Receive Date: 20120706
  Receipt Date: 20120628
  Transmission Date: 20120928
  Serious: Yes (Death, Hospitalization, Other)
  Sender: FDA-Public Use
  Company Number: JP-BRISTOL-MYERS SQUIBB COMPANY-15291107

PATIENT
  Age: 77 Year
  Sex: Male
  Weight: 57 kg

DRUGS (12)
  1. LASIX [Concomitant]
     Route: 048
     Dates: start: 20080703, end: 20100905
  2. SODIUM BICARBONATE [Concomitant]
     Dosage: INJ
     Route: 042
     Dates: start: 20100823, end: 20100823
  3. NEUTROGIN [Concomitant]
     Indication: CHEMOTHERAPY
     Dosage: CHEMOTHERAPY FROM 23AUG-30AUG10 INJ
     Route: 058
     Dates: start: 20100831, end: 20100906
  4. DIAMOX [Concomitant]
     Route: 042
     Dates: start: 20100825, end: 20100827
  5. SPRYCEL [Suspect]
     Indication: ACUTE LYMPHOCYTIC LEUKAEMIA
     Dosage: 70MG 2/1D 28JUN-05JUL 50MG 1/1D 06JUL-22AUG10  REDUCED 140MG TO 50MG
     Route: 048
     Dates: start: 20100628, end: 20100822
  6. PINORUBIN [Suspect]
     Indication: ACUTE LYMPHOCYTIC LEUKAEMIA
     Route: 042
     Dates: start: 20100823, end: 20100825
  7. CYTARABINE [Suspect]
     Indication: ACUTE LYMPHOCYTIC LEUKAEMIA
     Route: 042
     Dates: start: 20100528, end: 20100819
  8. PREDNISOLONE [Suspect]
     Indication: ACUTE LYMPHOCYTIC LEUKAEMIA
     Dosage: 10MG/DAY 28MAY10-19AUG10,23AUG10-31AUG10
     Route: 042
     Dates: start: 20100528, end: 20100831
  9. FAMOTIDINE [Concomitant]
     Route: 048
     Dates: start: 20090803, end: 20100905
  10. ONCOVIN [Suspect]
     Indication: ACUTE LYMPHOCYTIC LEUKAEMIA
     Route: 042
     Dates: start: 20100823, end: 20100830
  11. METHOTREXATE [Suspect]
     Indication: ACUTE LYMPHOCYTIC LEUKAEMIA
     Dates: start: 20100528, end: 20100819
  12. PURSENNID [Concomitant]
     Dosage: TAB
     Route: 048
     Dates: start: 20100215, end: 20100905

REACTIONS (4)
  - SEPSIS [None]
  - CIRCULATORY COLLAPSE [None]
  - FEBRILE NEUTROPENIA [None]
  - PANCYTOPENIA [None]
